FAERS Safety Report 19419842 (Version 3)
Quarter: 2022Q3

REPORT INFORMATION
  Report Type: Report from Study
  Country: CH (occurrence: CH)
  Receive Date: 20210615
  Receipt Date: 20220718
  Transmission Date: 20221027
  Serious: Yes (Hospitalization)
  Sender: FDA-Public Use
  Company Number: CH-IPSEN GROUP, RESEARCH AND DEVELOPMENT-2021-14474

PATIENT

DRUGS (13)
  1. CABOZANTINIB [Suspect]
     Active Substance: CABOZANTINIB
     Indication: Metastatic renal cell carcinoma
     Dosage: 60 MG, QD
     Route: 048
     Dates: start: 20201216, end: 20210315
  2. CABOZANTINIB [Suspect]
     Active Substance: CABOZANTINIB
     Dosage: 60 MG, QD
     Route: 048
     Dates: start: 20210413, end: 20210517
  3. LISINOPRIL [Concomitant]
     Active Substance: LISINOPRIL
     Indication: Hypertension
     Dosage: 20 MG, QD
     Route: 048
  4. SIMVASTATIN [Concomitant]
     Active Substance: SIMVASTATIN
     Indication: Hyperlipidaemia
     Dosage: 40 MG, QD
     Route: 048
  5. EUTHYROX [Concomitant]
     Active Substance: LEVOTHYROXINE SODIUM
     Indication: Hypothyroidism
     Dosage: 75 MICROGRAM, DAILY
     Route: 048
     Dates: start: 20200821
  6. VASELINE PURE [Concomitant]
     Active Substance: PETROLATUM
     Indication: Palmar-plantar erythrodysaesthesia syndrome
     Dosage: 10 PERCENTAGE 4 TIMES PER DAY
     Route: 062
     Dates: start: 20200828
  7. ZOLPIDEM TARTRATE [Concomitant]
     Active Substance: ZOLPIDEM TARTRATE
     Indication: Insomnia
     Dosage: 10 MG AS NEEDED
     Route: 048
  8. MORPHINE [Concomitant]
     Active Substance: MORPHINE
     Indication: Abdominal pain
     Dosage: 5 MG AS NEEDED
     Route: 048
     Dates: start: 20201229
  9. UREA [Concomitant]
     Active Substance: UREA
     Indication: Palmar-plantar erythrodysaesthesia syndrome
     Dosage: 40 MG/ML 4 TIMES A DAY
     Route: 062
     Dates: start: 20210219
  10. CALCIUM\CHOLECALCIFEROL [Concomitant]
     Active Substance: CALCIUM\CHOLECALCIFEROL
     Indication: Prophylaxis
     Dosage: 500 MG DAILY
     Route: 048
     Dates: start: 20200608
  11. ASPIRIN [Concomitant]
     Active Substance: ASPIRIN
     Indication: Prophylaxis
     Dosage: 100 MG DAILY
     Route: 048
     Dates: start: 201304
  12. BUTYLSCOPOLAMINE BROMIDE [Concomitant]
     Active Substance: BUTYLSCOPOLAMINE BROMIDE
     Indication: Abdominal pain
     Dosage: 10 MG AS NEEDED
     Route: 048
     Dates: start: 20201216
  13. ESOMEPRAZOLE [Concomitant]
     Active Substance: ESOMEPRAZOLE
     Indication: Prophylaxis
     Dosage: 40 MG DAILY
     Route: 048
     Dates: start: 20210209

REACTIONS (1)
  - Abdominal wall wound [Not Recovered/Not Resolved]

NARRATIVE: CASE EVENT DATE: 20210609
